FAERS Safety Report 5575146-5 (Version None)
Quarter: 2007Q4

REPORT INFORMATION
  Report Type: 
  Country: None (occurrence: None)
  Receive Date: 20071227
  Receipt Date: 20071218
  Transmission Date: 20080405
  Serious: Yes (Life-Threatening, Hospitalization)
  Sender: FDA-Public Use
  Company Number: PL-RANBAXY-2007US-12227

PATIENT

DRUGS (3)
  1. ISOPTIN SR [Suspect]
     Indication: SUICIDE ATTEMPT
     Dosage: 960 MG, SINGLE
     Route: 048
  2. PROPRANOLOL [Suspect]
     Indication: SUICIDE ATTEMPT
     Dosage: 550 MG, SINGLE
  3. ETHYL ALCOHOL [Concomitant]
     Indication: SOCIAL ALCOHOL DRINKER

REACTIONS (5)
  - CARDIAC ARREST [None]
  - CARDIOGENIC SHOCK [None]
  - DRUG INTERACTION [None]
  - INTENTIONAL OVERDOSE [None]
  - SUICIDE ATTEMPT [None]
